FAERS Safety Report 18024705 (Version 1)
Quarter: 2020Q3

REPORT INFORMATION
  Report Type: Spontaneous
  Country: US (occurrence: US)
  Receive Date: 20200715
  Receipt Date: 20200715
  Transmission Date: 20201103
  Serious: No
  Sender: FDA-Public Use
  Company Number: None

PATIENT
  Age: 71 Year
  Sex: Female

DRUGS (10)
  1. ATENOLOL. [Concomitant]
     Active Substance: ATENOLOL
  2. EPCLUSA [Suspect]
     Active Substance: SOFOSBUVIR\VELPATASVIR
     Indication: HEPATITIS C
     Route: 048
     Dates: start: 20200528
  3. DILTIAZEM. [Concomitant]
     Active Substance: DILTIAZEM
  4. ATORVASTATIN [Concomitant]
     Active Substance: ATORVASTATIN
  5. CHLORTHALIDONE. [Concomitant]
     Active Substance: CHLORTHALIDONE
  6. MELOXICAM. [Concomitant]
     Active Substance: MELOXICAM
  7. VITAMIN D [Concomitant]
     Active Substance: VITAMIN D NOS
  8. POTASSIUM [Concomitant]
     Active Substance: POTASSIUM
  9. SHINGRIX [Concomitant]
     Active Substance: RECOMBINANT VARICELLA ZOSTER VIRUS (VZV) GLYCOPROTEIN E
  10. PRESERVISION WITH AREDS [Concomitant]

REACTIONS (2)
  - Heart rate decreased [None]
  - Drug interaction [None]

NARRATIVE: CASE EVENT DATE: 20200708
